FAERS Safety Report 6977086-3 (Version None)
Quarter: 2010Q3

REPORT INFORMATION
  Report Type: 
  Country: None (occurrence: None)
  Receive Date: 20100910
  Receipt Date: 20100902
  Transmission Date: 20110219
  Serious: Yes (Other)
  Sender: FDA-Public Use
  Company Number: AU-MERCK-1007USA01081

PATIENT
  Age: 47 Year
  Sex: Female

DRUGS (2)
  1. SINEMET [Suspect]
     Indication: PARKINSON'S DISEASE
     Route: 048
     Dates: start: 20050101
  2. CABASER [Suspect]
     Indication: PARKINSON'S DISEASE
     Route: 048
     Dates: start: 19940101, end: 20061013

REACTIONS (3)
  - COMPULSIVE SHOPPING [None]
  - INSOMNIA [None]
  - STEREOTYPY [None]
